FAERS Safety Report 17686669 (Version 4)
Quarter: 2020Q3

REPORT INFORMATION
  Report Type: Spontaneous
  Country: CZ (occurrence: CZ)
  Receive Date: 20200420
  Receipt Date: 20200713
  Transmission Date: 20201102
  Serious: Yes (Other)
  Sender: FDA-Public Use
  Company Number: CZ-AUROBINDO-AUR-APL-2020-019613

PATIENT
  Age: 40 Year
  Sex: Male
  Weight: 103 kg

DRUGS (3)
  1. TELMISARTAN. [Suspect]
     Active Substance: TELMISARTAN
     Indication: ESSENTIAL HYPERTENSION
     Dosage: 80 MILLIGRAM, ONCE A DAY
     Route: 065
  2. AMLODIPINE [Suspect]
     Active Substance: AMLODIPINE BESYLATE
     Indication: ESSENTIAL HYPERTENSION
     Dosage: 5 MILLIGRAM, ONCE A DAY
     Route: 065
  3. SIMVASTATIN  FILM COATED TABLETS [Suspect]
     Active Substance: SIMVASTATIN
     Indication: DYSLIPIDAEMIA
     Dosage: 20 MILLIGRAM, ONCE A DAY
     Route: 048

REACTIONS (8)
  - Diabetic neuropathy [Unknown]
  - Oedema peripheral [Recovered/Resolved]
  - Polyneuropathy [Unknown]
  - Back pain [Recovering/Resolving]
  - Symptom recurrence [Unknown]
  - Diabetes mellitus [Recovering/Resolving]
  - Paraesthesia [Unknown]
  - Peripheral motor neuropathy [Unknown]

NARRATIVE: CASE EVENT DATE: 201812
